FAERS Safety Report 12162482 (Version 2)
Quarter: 2016Q2

REPORT INFORMATION
  Report Type: Report from Study
  Country: TW (occurrence: TW)
  Receive Date: 20160309
  Receipt Date: 20160420
  Transmission Date: 20160815
  Serious: Yes (Death, Life-Threatening, Other)
  Sender: FDA-Public Use
  Company Number: TW-ASTELLAS-2016US008611

PATIENT
  Age: 81 Year
  Sex: Male

DRUGS (3)
  1. VINORELBINE [Concomitant]
     Active Substance: VINORELBINE\VINORELBINE TARTRATE
     Indication: LUNG NEOPLASM MALIGNANT
     Route: 048
     Dates: start: 20160104
  2. ERLOTINIB [Suspect]
     Active Substance: ERLOTINIB
     Indication: NON-SMALL CELL LUNG CANCER
     Route: 048
     Dates: start: 20160118, end: 20160127
  3. VINORELBINE [Concomitant]
     Active Substance: VINORELBINE\VINORELBINE TARTRATE
     Route: 048
     Dates: start: 20150525, end: 20151228

REACTIONS (12)
  - Gastrooesophageal reflux disease [Unknown]
  - Diarrhoea [Unknown]
  - Oral herpes [Unknown]
  - Respiratory failure [Fatal]
  - Gastric ulcer [Unknown]
  - Interstitial lung disease [Not Recovered/Not Resolved]
  - Acute respiratory distress syndrome [Unknown]
  - Pleural effusion [Unknown]
  - Hypernatraemia [Unknown]
  - Duodenal ulcer [Unknown]
  - Pneumonia [Unknown]
  - Liver disorder [Unknown]

NARRATIVE: CASE EVENT DATE: 201601
